FAERS Safety Report 13022928 (Version 3)
Quarter: 2017Q1

REPORT INFORMATION
  Report Type: Spontaneous
  Country: US (occurrence: US)
  Receive Date: 20161213
  Receipt Date: 20170130
  Transmission Date: 20170428
  Serious: No
  Sender: FDA-Public Use
  Company Number: US-GLAXOSMITHKLINE-US2016183117

PATIENT
  Age: 69 Year
  Sex: Female

DRUGS (1)
  1. ADVAIR DISKUS [Suspect]
     Active Substance: FLUTICASONE PROPIONATE\SALMETEROL XINAFOATE
     Indication: EMPHYSEMA
     Dosage: 1 PUFF(S), BID
     Route: 055
     Dates: start: 2009

REACTIONS (5)
  - Pallor [Not Recovered/Not Resolved]
  - Product quality issue [Unknown]
  - Lip exfoliation [Not Recovered/Not Resolved]
  - Lip dry [Not Recovered/Not Resolved]
  - Lip pain [Not Recovered/Not Resolved]

NARRATIVE: CASE EVENT DATE: 201611
